FAERS Safety Report 24921689 (Version 1)
Quarter: 2025Q1

REPORT INFORMATION
  Report Type: Spontaneous
  Country: US (occurrence: US)
  Receive Date: 20250204
  Receipt Date: 20250204
  Transmission Date: 20250409
  Serious: Yes (Other)
  Sender: ROCHE
  Company Number: US-ROCHE-10000193412

PATIENT
  Age: 33 Year
  Sex: Female
  Weight: 72.57 kg

DRUGS (6)
  1. XOLAIR [Suspect]
     Active Substance: OMALIZUMAB
     Indication: Chronic spontaneous urticaria
     Route: 058
  2. ZYRTEC [Concomitant]
     Active Substance: CETIRIZINE HYDROCHLORIDE
     Route: 065
  3. epinephrine 0.3 mg/0.3 mL auto-injector [Concomitant]
     Indication: Anaphylactic reaction
  4. CYCLOSPORINE [Concomitant]
     Active Substance: CYCLOSPORINE
  5. TACROLIMUS [Concomitant]
     Active Substance: TACROLIMUS
  6. PREDNISONE [Concomitant]
     Active Substance: PREDNISONE

REACTIONS (2)
  - Angioedema [Unknown]
  - Urticaria [Unknown]
